FAERS Safety Report 5499972-6 (Version None)
Quarter: 2007Q4

REPORT INFORMATION
  Report Type: 
  Country: None (occurrence: None)
  Receive Date: 20071026
  Receipt Date: 20071016
  Transmission Date: 20080405
  Serious: Yes (Other)
  Sender: FDA-Public Use
  Company Number: US-PFIZER INC-2007088154

PATIENT
  Sex: Female
  Weight: 89.8 kg

DRUGS (10)
  1. CHANTIX [Suspect]
     Indication: EX-SMOKER
  2. ACIPHEX [Concomitant]
  3. ATENOLOL [Concomitant]
  4. SYNTHROID [Concomitant]
  5. ADVAIR DISKUS 100/50 [Concomitant]
  6. COMBIVENT [Concomitant]
  7. XANAX [Concomitant]
  8. VICODIN [Concomitant]
  9. EPINEPHRINE [Concomitant]
  10. BENADRYL [Concomitant]

REACTIONS (4)
  - DYSGEUSIA [None]
  - GLOSSODYNIA [None]
  - NAUSEA [None]
  - SWOLLEN TONGUE [None]
